FAERS Safety Report 21713611 (Version 1)
Quarter: 2022Q4

REPORT INFORMATION
  Report Type: Spontaneous
  Country: US (occurrence: US)
  Receive Date: 20221212
  Receipt Date: 20221212
  Transmission Date: 20230113
  Serious: Yes (Other)
  Sender: FDA-Public Use
  Company Number: US-AMERICAN REGENT INC-2022001971

PATIENT
  Age: 40 Year
  Sex: Female
  Weight: 69.841 kg

DRUGS (11)
  1. VENOFER [Suspect]
     Active Substance: IRON SUCROSE
     Indication: Iron deficiency anaemia
     Dosage: UNK UNK, SINGLE
     Route: 042
     Dates: start: 201210, end: 201210
  2. VENOFER [Suspect]
     Active Substance: IRON SUCROSE
     Dosage: 200 MILLIGRAM, SINGLE
     Route: 042
     Dates: start: 20140718, end: 20140718
  3. VENOFER [Suspect]
     Active Substance: IRON SUCROSE
     Dosage: 200 MILLIGRAM, SINGLE
     Route: 042
     Dates: start: 20140721, end: 20140721
  4. ORENCIA [Concomitant]
     Active Substance: ABATACEPT
     Indication: Systemic lupus erythematosus
     Dosage: 125 MILLIGRAM EVERY 7 DAYS
     Route: 058
  5. ELAVIL [Concomitant]
     Active Substance: AMITRIPTYLINE HYDROCHLORIDE
     Indication: Product used for unknown indication
     Dosage: 25 MILLIGRAM, EVERY EVENING
     Route: 048
  6. DECADRON [Concomitant]
     Active Substance: DEXAMETHASONE
     Indication: Product used for unknown indication
     Dosage: 4 MILLIGRAM. TAKE 8MG (2 TABS) THE NIGHT BEFORE AND THE MORNING OF IV IRON INFUSION
     Route: 048
  7. VITAMIN D2 [Concomitant]
     Active Substance: ERGOCALCIFEROL
     Indication: Vitamin D decreased
     Dosage: 50000 UNIT ONCE EVERY WEEK
     Route: 048
  8. FOLVITE [FOLIC ACID] [Concomitant]
     Indication: Product used for unknown indication
     Dosage: 1 MILLIGRAM, QD
     Route: 048
  9. METHOTREXATE [Concomitant]
     Active Substance: METHOTREXATE
     Indication: Product used for unknown indication
     Dosage: 2.5 MILLIGRAM, TAKE 5 TABLETS (12.5 MG TOTAL) BY MOUTH EVERY 7 DAYS
     Route: 048
  10. SAVELLA [Concomitant]
     Active Substance: MILNACIPRAN HYDROCHLORIDE
     Indication: Product used for unknown indication
     Dosage: 50 MILLIGRAM, BID
     Route: 048
  11. ULTRAM [Concomitant]
     Active Substance: TRAMADOL HYDROCHLORIDE
     Indication: Pain
     Dosage: 50 MILLIGRAM, 3 TIMES DAILY PRN
     Route: 048

REACTIONS (3)
  - Drug hypersensitivity [Recovered/Resolved]
  - Incorrect product administration duration [Recovered/Resolved]
  - Product use in unapproved indication [Recovered/Resolved]

NARRATIVE: CASE EVENT DATE: 20140701
